FAERS Safety Report 10196272 (Version 1)
Quarter: 2014Q2

REPORT INFORMATION
  Report Type: Spontaneous
  Country: US (occurrence: US)
  Receive Date: 20140527
  Receipt Date: 20140527
  Transmission Date: 20141212
  Serious: No
  Sender: FDA-Public Use
  Company Number: US-JNJFOC-20140513690

PATIENT
  Age: 22 Year
  Sex: Male

DRUGS (3)
  1. INVEGA [Suspect]
     Indication: PRODUCT USED FOR UNKNOWN INDICATION
     Route: 048
     Dates: start: 2014
  2. LAMICTAL [Concomitant]
     Route: 048
  3. LITHIUM [Concomitant]
     Route: 048

REACTIONS (1)
  - Muscle contractions involuntary [Not Recovered/Not Resolved]
